FAERS Safety Report 11166501 (Version 2)
Quarter: 2015Q2

REPORT INFORMATION
  Report Type: Spontaneous
  Country: DE (occurrence: DE)
  Receive Date: 20150605
  Receipt Date: 20150618
  Transmission Date: 20150821
  Serious: Yes (Hospitalization)
  Sender: FDA-Public Use
  Company Number: DE-009507513-1506DEU002267

PATIENT
  Age: 80 Year
  Sex: Male

DRUGS (12)
  1. JANUVIA [Suspect]
     Active Substance: SITAGLIPTIN PHOSPHATE
     Dosage: 25 MG, ONCE DAILY
     Route: 048
  2. NOVAMIN (AMIKACIN SULFATE) [Suspect]
     Active Substance: AMIKACIN SULFATE
     Dosage: TROPFEN; 40 GTT, ONCE DAILY
  3. TOREM [Suspect]
     Active Substance: TORSEMIDE
     Dosage: 10 MG, ONCE DAILY
  4. TAMSULOSIN HYDROCHLORIDE. [Suspect]
     Active Substance: TAMSULOSIN HYDROCHLORIDE
     Dosage: 0.4 MG, ONCE DAILY
  5. OXYCODONE [Suspect]
     Active Substance: OXYCODONE
     Dosage: 10 MG EVERY DAY
  6. TILIDIN [Suspect]
     Active Substance: NALOXONE HYDROCHLORIDE\TILIDINE HYDROCHLORIDE
     Dosage: STRENGTH: 40/4(UNIT UNKNOWN)1 DF, QD
  7. LANTUS [Suspect]
     Active Substance: INSULIN GLARGINE
     Dosage: 20 IU, ONCE DAILY
  8. FOLSAN [Suspect]
     Active Substance: FOLIC ACID
     Dosage: 1 DOSAGE FORM, ONCE DAILY
  9. VIGANTOLETTEN [Suspect]
     Active Substance: CHOLECALCIFEROL
     Dosage: 1000 IU, ONCE DAILY
  10. ARCOXIA [Suspect]
     Active Substance: ETORICOXIB
     Dosage: 1 DOSAGE FORM, ONCE DAILY
     Route: 048
  11. LYRICA [Suspect]
     Active Substance: PREGABALIN
     Dosage: 150 MG EVERY DAY(75 MG, TWICE DAILY)
  12. OPIPRAMOL HYDROCHLORIDE [Suspect]
     Active Substance: OPIPRAMOL HYDROCHLORIDE
     Dosage: 50 MG ONCE DAILY

REACTIONS (5)
  - Upper limb fracture [Unknown]
  - Fatigue [Unknown]
  - Laceration [Unknown]
  - Dizziness [Unknown]
  - Fall [Unknown]
